FAERS Safety Report 6700263-3 (Version None)
Quarter: 2010Q2

REPORT INFORMATION
  Report Type: 
  Country: None (occurrence: None)
  Receive Date: 20100428
  Receipt Date: 20100423
  Transmission Date: 20101027
  Serious: Yes (Other)
  Sender: FDA-Public Use
  Company Number: CHPA2010SE07387

PATIENT
  Sex: Female

DRUGS (10)
  1. NICOTINELL GUM (NCH) [Suspect]
     Indication: SMOKING CESSATION THERAPY
     Dosage: UNK, UNK
     Route: 002
  2. NICORETTE [Suspect]
     Indication: SMOKING CESSATION THERAPY
     Dosage: 24 DF, QD
     Route: 048
     Dates: start: 19990801
  3. NICOTINE [Concomitant]
  4. ACETAMINOPHEN [Concomitant]
     Indication: BACK DISORDER
     Dosage: UNK
  5. FEMANEST [Concomitant]
  6. PULMICORT [Concomitant]
     Indication: ASTHMA
     Dosage: UNK
  7. LOMUDAL [Concomitant]
     Indication: ASTHMA
     Dosage: UNK
  8. CETIRIZINE HCL [Concomitant]
     Dosage: 10 MG AT SPRING, UNK
     Route: 048
  9. CHISANDRA - ADAPTOGEN [Concomitant]
     Dosage: UNK
  10. ANEUROL [Concomitant]
     Dosage: 2 DF, PRN
     Route: 048

REACTIONS (3)
  - DRUG DEPENDENCE [None]
  - OVERDOSE [None]
  - TREATMENT NONCOMPLIANCE [None]
